FAERS Safety Report 9823422 (Version 1)
Quarter: 2014Q1

REPORT INFORMATION
  Report Type: Spontaneous
  Country: TR (occurrence: TR)
  Receive Date: 20140116
  Receipt Date: 20140116
  Transmission Date: 20141002
  Serious: Yes (Hospitalization, Other)
  Sender: FDA-Public Use
  Company Number: PHHY2014TR002698

PATIENT
  Age: 77 Year
  Sex: Female

DRUGS (4)
  1. METHYLPREDNISOLONE [Suspect]
     Dosage: 48 MG/DAY
  2. METHYLPREDNISOLONE [Suspect]
     Dosage: 16 MG/ DAY
  3. FLUCONAZOLE [Suspect]
     Indication: ORAL DISORDER
     Route: 048
  4. FLUCONAZOLE [Suspect]
     Indication: DYSPHAGIA

REACTIONS (12)
  - Candida infection [Recovered/Resolved]
  - Oesophageal candidiasis [Recovered/Resolved]
  - Oral candidiasis [Recovered/Resolved]
  - Oral disorder [Recovered/Resolved]
  - Cytomegalovirus infection [Recovered/Resolved]
  - Cytomegalovirus oesophagitis [Recovered/Resolved]
  - Oropharyngeal plaque [Recovered/Resolved]
  - Dysphagia [Recovered/Resolved]
  - Urinary tract infection [Unknown]
  - Pulmonary embolism [Unknown]
  - Blood lactate dehydrogenase increased [Unknown]
  - Drug ineffective [Unknown]
